FAERS Safety Report 20654833 (Version 1)
Quarter: 2022Q1

REPORT INFORMATION
  Report Type: Spontaneous
  Country: US (occurrence: None)
  Receive Date: 20220329
  Receipt Date: 20220329
  Transmission Date: 20220423
  Serious: No
  Sender: FDA-Public Use
  Company Number: None

PATIENT
  Age: 54 Year
  Sex: Male

DRUGS (1)
  1. EPCLUSA [Suspect]
     Active Substance: SOFOSBUVIR\VELPATASVIR
     Dosage: OTHER QUANTITY : 400-100;?FREQUENCY : DAILY;?
     Route: 048
     Dates: start: 20220315, end: 20220327

REACTIONS (3)
  - Renal pain [None]
  - Rash [None]
  - Hepatomegaly [None]

NARRATIVE: CASE EVENT DATE: 20220322
